FAERS Safety Report 12946435 (Version 2)
Quarter: 2016Q4

REPORT INFORMATION
  Report Type: Spontaneous
  Country: GB (occurrence: GB)
  Receive Date: 20161115
  Receipt Date: 20161122
  Transmission Date: 20170207
  Serious: Yes (Other)
  Sender: FDA-Public Use
  Company Number: GB-AMGEN-GBRSP2016160280

PATIENT
  Age: 68 Year
  Sex: Female

DRUGS (1)
  1. ENBREL [Suspect]
     Active Substance: ETANERCEPT
     Indication: PRODUCT USED FOR UNKNOWN INDICATION
     Dosage: 50 MG, WEEKLY
     Route: 058

REACTIONS (7)
  - Muscle spasms [Unknown]
  - Angina pectoris [Unknown]
  - Restless legs syndrome [Unknown]
  - Drug ineffective [Unknown]
  - Poor quality sleep [Unknown]
  - Pain in extremity [Unknown]
  - Arthralgia [Recovered/Resolved]
